FAERS Safety Report 4800133-1 (Version None)
Quarter: 2005Q4

REPORT INFORMATION
  Report Type: 
  Country: None (occurrence: None)
  Receive Date: 20051017
  Receipt Date: 20051010
  Transmission Date: 20060501
  Serious: Yes (Congenital Anomaly, Other)
  Sender: FDA-Public Use
  Company Number: GB-JNJFOC-20050906065

PATIENT

DRUGS (2)
  1. LAMOTRIGINE [Suspect]
  2. TOPAMAX [Suspect]

REACTIONS (3)
  - DRUG EXPOSURE DURING PREGNANCY [None]
  - HERNIA CONGENITAL [None]
  - HYDROCELE [None]
